FAERS Safety Report 6640918-2 (Version None)
Quarter: 2010Q1

REPORT INFORMATION
  Report Type: 
  Country: None (occurrence: None)
  Receive Date: 20100318
  Receipt Date: 20100301
  Transmission Date: 20100710
  Serious: No
  Sender: FDA-Public Use
  Company Number: US-B.I. PHARMACEUTICALS,INC./RIDGEFIELD-2010-BP-02648PF

PATIENT
  Sex: Female

DRUGS (4)
  1. SPIRIVA [Suspect]
  2. LYRICA [Suspect]
  3. GLEEVEC [Suspect]
  4. SPRYCEL [Suspect]

REACTIONS (5)
  - ABASIA [None]
  - BLOOD COUNT ABNORMAL [None]
  - DRUG INEFFECTIVE [None]
  - MUSCLE TIGHTNESS [None]
  - VOMITING [None]
